FAERS Safety Report 23415688 (Version 2)
Quarter: 2024Q2

REPORT INFORMATION
  Report Type: Spontaneous
  Country: US (occurrence: US)
  Receive Date: 20240118
  Receipt Date: 20240426
  Transmission Date: 20240716
  Serious: Yes (Hospitalization)
  Sender: FDA-Public Use
  Company Number: US-TEVA-VS-3135513

PATIENT
  Age: 29 Year
  Sex: Female

DRUGS (3)
  1. CALCITRIOL [Suspect]
     Active Substance: CALCITRIOL
     Indication: Hypocalcaemia
     Route: 065
  2. CALCIUM [Suspect]
     Active Substance: CALCIUM
     Indication: Hypocalcaemia
     Route: 065
  3. METHIMAZOLE [Concomitant]
     Active Substance: METHIMAZOLE
     Indication: Hyperthyroidism
     Route: 065

REACTIONS (2)
  - Hypercalcaemia [Unknown]
  - Posterior reversible encephalopathy syndrome [Unknown]
